FAERS Safety Report 9893273 (Version 1)
Quarter: 2014Q1

REPORT INFORMATION
  Report Type: Spontaneous
  Country: GB (occurrence: GB)
  Receive Date: 20140213
  Receipt Date: 20140213
  Transmission Date: 20141002
  Serious: Yes (Hospitalization, Disabling)
  Sender: FDA-Public Use
  Company Number: GB-ROCHE-1346528

PATIENT
  Age: 79 Year
  Sex: Male
  Weight: 77.8 kg

DRUGS (15)
  1. ORLISTAT [Suspect]
     Indication: OVERWEIGHT
     Route: 048
     Dates: start: 20121207, end: 20130711
  2. ADCAL-D3 [Concomitant]
  3. ASPIRIN [Concomitant]
  4. ATORVASTATIN [Concomitant]
  5. BECLOMETHASONE [Concomitant]
  6. CETIRIZINE [Concomitant]
  7. DOXAZOSIN [Concomitant]
  8. FINASTERIDE [Concomitant]
  9. FUROSEMIDE [Concomitant]
  10. GLIMEPIRIDE [Concomitant]
  11. LANSOPRAZOLE [Concomitant]
  12. LISINOPRIL [Concomitant]
  13. METFORMIN [Concomitant]
     Route: 065
  14. NAPROXEN [Concomitant]
     Route: 065
  15. TAMSULOSINE [Concomitant]

REACTIONS (2)
  - Renal failure chronic [Unknown]
  - Nephropathy [Recovered/Resolved with Sequelae]
